FAERS Safety Report 6219254-4 (Version None)
Quarter: 2009Q2

REPORT INFORMATION
  Report Type: 
  Country: None (occurrence: None)
  Receive Date: 20090605
  Receipt Date: 20090605
  Transmission Date: 20091009
  Serious: Yes (Other)
  Sender: FDA-Public Use
  Company Number: None

PATIENT
  Sex: Female
  Weight: 57.6068 kg

DRUGS (1)
  1. ACTONEL [Suspect]
     Indication: BONE DENSITY INCREASED
     Dosage: 1 MONTHLY PO
     Route: 048
     Dates: start: 20090530, end: 20090530

REACTIONS (5)
  - ARTHRALGIA [None]
  - CHEST PAIN [None]
  - HEADACHE [None]
  - HYPERAESTHESIA [None]
  - MYALGIA [None]
